FAERS Safety Report 19120571 (Version 1)
Quarter: 2021Q2

REPORT INFORMATION
  Report Type: Spontaneous
  Country: US (occurrence: US)
  Receive Date: 20210409
  Receipt Date: 20210409
  Transmission Date: 20210717
  Serious: Yes (Disabling)
  Sender: FDA-Public Use
  Company Number: None

PATIENT
  Age: 49 Year
  Sex: Female

DRUGS (2)
  1. NATURE?THROID [Suspect]
     Active Substance: THYROID, PORCINE
  2. WP THYROID [Suspect]
     Active Substance: THYROID, PORCINE
     Indication: HYPOTHYROIDISM

REACTIONS (9)
  - Anxiety [None]
  - Blood thyroid stimulating hormone increased [None]
  - Fatigue [None]
  - Dry skin [None]
  - Insomnia [None]
  - Depression [None]
  - Product substitution issue [None]
  - Feeling abnormal [None]
  - Onychoclasis [None]

NARRATIVE: CASE EVENT DATE: 20210201
